FAERS Safety Report 6671531-9 (Version None)
Quarter: 2010Q2

REPORT INFORMATION
  Report Type: 
  Country: None (occurrence: None)
  Receive Date: 20100406
  Receipt Date: 20100406
  Transmission Date: 20101027
  Serious: Yes (Death, Life-Threatening, Hospitalization)
  Sender: FDA-Public Use
  Company Number: None

PATIENT
  Age: 53 Year
  Sex: Female
  Weight: 46.2669 kg

DRUGS (1)
  1. ARICEPT [Suspect]

REACTIONS (4)
  - FALL [None]
  - INJURY [None]
  - PARALYSIS [None]
  - SYNCOPE [None]
